FAERS Safety Report 8243106-1 (Version None)
Quarter: 2012Q1

REPORT INFORMATION
  Report Type: 
  Country: None (occurrence: None)
  Receive Date: 20120329
  Receipt Date: 20110929
  Transmission Date: 20120608
  Serious: No
  Sender: FDA-Public Use
  Company Number: US-MYLANLABS-2011S1020562

PATIENT
  Age: 79 Year
  Sex: Female

DRUGS (2)
  1. ALBUTEROL SULATE [Suspect]
     Indication: CHRONIC OBSTRUCTIVE PULMONARY DISEASE
     Route: 055
     Dates: start: 20110908, end: 20110908
  2. ALBUTEROL SULATE [Suspect]
     Route: 055
     Dates: start: 20110908, end: 20110908

REACTIONS (1)
  - THROAT IRRITATION [None]
